FAERS Safety Report 9505427 (Version 1)
Quarter: 2013Q1

REPORT INFORMATION
  Report Type: Spontaneous
  Country: US (occurrence: None)
  Receive Date: 20130220
  Receipt Date: 20130220
  Transmission Date: 20140127
  Serious: No
  Sender: FDA-Public Use
  Company Number: 1000041479

PATIENT
  Age: 88 Year
  Sex: Female

DRUGS (6)
  1. VIIBRYD [Suspect]
     Indication: DEPRESSION
     Route: 048
     Dates: start: 20130105
  2. SYNTHROID (LEVOTHYROXINE SODIUM) (LEVOTHROXINE SODIUM) [Concomitant]
  3. METOPROLOL (METOPROLOL) (METOPROLOL) [Concomitant]
  4. KLONOPIN (CLONAZEPAM) (CLONZEPAM) [Concomitant]
  5. ADVAIR (SERETIDE) (SERETIDE) [Concomitant]
  6. BABY ASPIRIN (ACETYLSALICYLIC ACID) (ACTYLSALICYLIC ACID) [Concomitant]

REACTIONS (4)
  - Diarrhoea [None]
  - Nausea [None]
  - Back pain [None]
  - Somnolence [None]
